FAERS Safety Report 19902109 (Version 1)
Quarter: 2021Q3

REPORT INFORMATION
  Report Type: Spontaneous
  Country: CZ (occurrence: CZ)
  Receive Date: 20210930
  Receipt Date: 20210930
  Transmission Date: 20211014
  Serious: Yes (Other)
  Sender: FDA-Public Use
  Company Number: CZ-MYLANLABS-2021M1066295

PATIENT
  Age: 45 Year
  Sex: Male

DRUGS (7)
  1. LEVETIRACETAM. [Suspect]
     Active Substance: LEVETIRACETAM
     Dosage: 250 MILLIGRAM, 2X/DAY (BID)
     Dates: start: 201811, end: 20190102
  2. BRIVARACETAM [Suspect]
     Active Substance: BRIVARACETAM
     Indication: PRODUCT USED FOR UNKNOWN INDICATION
     Dosage: 25 MILLIGRAM, 2X/DAY (BID)
     Dates: start: 20190102, end: 20190515
  3. LEVETIRACETAM. [Suspect]
     Active Substance: LEVETIRACETAM
     Dosage: 500 MILLIGRAM, 2X/DAY (BID) (GRADUALLY INCREASED)
     Dates: start: 201005, end: 201406
  4. CARBAMAZEPINE. [Concomitant]
     Active Substance: CARBAMAZEPINE
     Indication: PRODUCT USED FOR UNKNOWN INDICATION
     Dosage: 300 MILLIGRAM, 2X/DAY (BID)
  5. LEVETIRACETAM. [Suspect]
     Active Substance: LEVETIRACETAM
     Indication: SEIZURE
     Dosage: 250 MILLIGRAM, 2X/DAY (BID)
     Dates: end: 201005
  6. BRIVARACETAM [Suspect]
     Active Substance: BRIVARACETAM
     Dosage: 25?0?50 MG
     Dates: start: 20190515
  7. CARBAMAZEPINE. [Concomitant]
     Active Substance: CARBAMAZEPINE
     Dosage: 450 MILLIGRAM, 2X/DAY (BID)

REACTIONS (9)
  - Product use issue [Unknown]
  - Erectile dysfunction [Recovered/Resolved]
  - Abdominal discomfort [Recovered/Resolved]
  - Altered state of consciousness [Recovered/Resolved]
  - Partial seizures with secondary generalisation [Recovered/Resolved]
  - Seizure [Recovered/Resolved]
  - Platelet count decreased [Recovered/Resolved]
  - Mood swings [Recovered/Resolved]
  - White blood cell count decreased [Recovered/Resolved]
